FAERS Safety Report 6791359-9 (Version None)
Quarter: 2010Q2

REPORT INFORMATION
  Report Type: 
  Country: None (occurrence: None)
  Receive Date: 20100618
  Receipt Date: 20100611
  Transmission Date: 20101027
  Serious: Yes (Death, Hospitalization)
  Sender: FDA-Public Use
  Company Number: WAES 1006USA00650

PATIENT
  Age: 54 Year
  Sex: Male
  Weight: 132.9039 kg

DRUGS (27)
  1. INFUSION (FORM) DALOTUZUMAB UNK [Suspect]
     Indication: NON-SMALL CELL LUNG CANCER
     Dosage: 1332 MG/WKY/IV
     Route: 042
     Dates: start: 20100428, end: 20100512
  2. ALIMTA [Suspect]
     Indication: NON-SMALL CELL LUNG CANCER
     Dosage: 1305 MG/1X/IV
     Route: 042
     Dates: start: 20100428, end: 20100428
  3. CISPLATIN [Suspect]
     Indication: NON-SMALL CELL LUNG CANCER
     Dosage: 190 MG/
     Dates: start: 20100428
  4. DECADRON [Suspect]
     Dosage: 4 MG/BID/PO
     Route: 048
  5. ACIPHEX [Concomitant]
  6. CELEXA [Concomitant]
  7. COMPAZINE [Concomitant]
  8. EMEND [Concomitant]
  9. FOLVITE [Concomitant]
  10. GLUCOPHAGE [Concomitant]
  11. MUCINEX [Concomitant]
  12. NEURONTIN [Concomitant]
  13. OXYCONTIN [Concomitant]
  14. PERCOCET [Concomitant]
  15. PHENERGAN (PROMETHAZINE HYDROCHL [Concomitant]
  16. PROVENTIL [Concomitant]
  17. RESTORIL [Concomitant]
  18. ROXICODONE [Concomitant]
  19. SENOKOT [Concomitant]
  20. TESSALON [Concomitant]
  21. TYLENOL [Concomitant]
  22. VIAGRA [Concomitant]
  23. ASPIRIN [Concomitant]
  24. CYANOCOBALAMIN [Concomitant]
  25. ERGOCALCIFEROL [Concomitant]
  26. LISINOPRIL [Concomitant]
  27. VITAMINS (UNSPECIFIED) [Concomitant]

REACTIONS (7)
  - CONVULSION [None]
  - DIABETES MELLITUS INADEQUATE CONTROL [None]
  - DYSPHAGIA [None]
  - MALIGNANT NEOPLASM PROGRESSION [None]
  - PNEUMONIA [None]
  - RESPIRATORY FAILURE [None]
  - VOMITING [None]
